FAERS Safety Report 25852123 (Version 1)
Quarter: 2025Q3

REPORT INFORMATION
  Report Type: Spontaneous
  Country: EU (occurrence: EU)
  Receive Date: 20250926
  Receipt Date: 20250926
  Transmission Date: 20251021
  Serious: Yes (Hospitalization, Other)
  Sender: FRESENIUS KABI
  Company Number: None

PATIENT
  Age: 45 Year
  Sex: Female

DRUGS (3)
  1. PACLITAXEL [Suspect]
     Active Substance: PACLITAXEL
     Indication: Breast cancer
     Dosage: 130MG WEEKLY?FOA: CONCENTRATION FOR SOLUTION FOR INFUSION
     Route: 042
     Dates: start: 20250729
  2. KEYTRUDA [Suspect]
     Active Substance: PEMBROLIZUMAB
     Indication: Breast cancer
     Dosage: 110MG EVERY 21 DAYS?FOA: CONCENTRATION FOR SOLUTION FOR INFUSION
     Dates: start: 20250729, end: 20250819
  3. CARBOPLATIN [Suspect]
     Active Substance: CARBOPLATIN
     Indication: Breast cancer
     Dosage: 210 MG WEEKLY?FOA: CONCENTRATION FOR SOLUTION FOR INFUSION
     Dates: start: 20250729

REACTIONS (1)
  - Toxic epidermal necrolysis [Unknown]

NARRATIVE: CASE EVENT DATE: 20250909
